FAERS Safety Report 9325665 (Version 2)
Quarter: 2013Q3

REPORT INFORMATION
  Report Type: Spontaneous
  Country: IT (occurrence: IT)
  Receive Date: 20130604
  Receipt Date: 20130708
  Transmission Date: 20140515
  Serious: Yes (Hospitalization)
  Sender: FDA-Public Use
  Company Number: IT-ROCHE-1231229

PATIENT
  Age: 63 Year
  Sex: Male

DRUGS (1)
  1. AVASTIN [Suspect]
     Indication: MACULOPATHY
     Route: 031
     Dates: start: 20110609, end: 20110609

REACTIONS (3)
  - Ischaemic cardiomyopathy [Recovered/Resolved]
  - Cardiac valve disease [Recovered/Resolved]
  - Mitral valve repair [Recovered/Resolved]
